FAERS Safety Report 14663169 (Version 1)
Quarter: 2018Q1

REPORT INFORMATION
  Report Type: Spontaneous
  Country: FR (occurrence: FR)
  Receive Date: 20180321
  Receipt Date: 20180321
  Transmission Date: 20180509
  Serious: Yes (Other)
  Sender: FDA-Public Use
  Company Number: FR-MERCK KGAA-2044205

PATIENT
  Sex: Female

DRUGS (1)
  1. NOVOTHYROX [Suspect]
     Active Substance: LEVOTHYROXINE SODIUM
     Indication: PRODUCT USED FOR UNKNOWN INDICATION

REACTIONS (13)
  - Hyperhidrosis [None]
  - Muscle spasms [None]
  - Pain in extremity [None]
  - Mood altered [None]
  - Arrhythmia [None]
  - Fatigue [None]
  - Decreased interest [None]
  - Irritability [None]
  - Asthenia [None]
  - Loss of personal independence in daily activities [None]
  - Headache [None]
  - Depressed mood [None]
  - Alopecia [None]
